FAERS Safety Report 8795394 (Version 2)
Quarter: 2015Q2

REPORT INFORMATION
  Report Type: Report from Study
  Country: US (occurrence: US)
  Receive Date: 20120917
  Receipt Date: 20150407
  Transmission Date: 20150821
  Serious: Yes (Death)
  Sender: FDA-Public Use
  Company Number: US-ROCHE-1129184

PATIENT
  Sex: Male

DRUGS (18)
  1. SULFAMETHOXAZOLE/TRIMETHOPRIM [Concomitant]
     Active Substance: SULFAMETHOXAZOLE\TRIMETHOPRIM
     Route: 065
  2. PROTONIX (UNITED STATES) [Concomitant]
  3. SURFAK (UNITED STATES) [Concomitant]
     Route: 065
  4. ALEVE [Concomitant]
     Active Substance: NAPROXEN SODIUM
  5. AVASTIN [Suspect]
     Active Substance: BEVACIZUMAB
     Indication: BRAIN NEOPLASM MALIGNANT
     Route: 042
     Dates: start: 20080625
  6. DECADRON [Suspect]
     Active Substance: DEXAMETHASONE
     Route: 065
  7. LOMOTIL (UNITED STATES) [Concomitant]
  8. ATROPINE [Concomitant]
     Active Substance: ATROPINE
     Route: 042
  9. DECADRON [Suspect]
     Active Substance: DEXAMETHASONE
     Indication: PRODUCT USED FOR UNKNOWN INDICATION
     Route: 065
  10. ETOPOSIDE. [Concomitant]
     Active Substance: ETOPOSIDE
     Dosage: 21 DAYS ON, 7 DAYS OFF
     Route: 048
     Dates: start: 20080916
  11. AVASTIN [Suspect]
     Active Substance: BEVACIZUMAB
     Route: 042
  12. ALOXI [Concomitant]
     Active Substance: PALONOSETRON HYDROCHLORIDE
     Route: 042
  13. COMPAZINE [Concomitant]
     Active Substance: PROCHLORPERAZINE MALEATE
  14. ZOFRAN [Concomitant]
     Active Substance: ONDANSETRON HYDROCHLORIDE
  15. IRINOTECAN [Concomitant]
     Active Substance: IRINOTECAN
     Route: 042
     Dates: start: 20080625
  16. ATIVAN [Concomitant]
     Active Substance: LORAZEPAM
     Route: 042
  17. GRANISETRON HYDROCHLORIDE. [Concomitant]
     Active Substance: GRANISETRON HYDROCHLORIDE
     Route: 042
  18. BANCAP [Concomitant]
     Indication: HYPERTENSION

REACTIONS (15)
  - Vomiting [Unknown]
  - Off label use [Unknown]
  - Muscular weakness [Unknown]
  - Myopathy [Unknown]
  - Hypertension [Recovering/Resolving]
  - Nausea [Unknown]
  - Decreased appetite [Unknown]
  - Disease progression [Unknown]
  - Back pain [Unknown]
  - Diarrhoea [Unknown]
  - Gait disturbance [Unknown]
  - Death [Fatal]
  - Faeces hard [Unknown]
  - Headache [Unknown]
  - Mental status changes [Unknown]
